FAERS Safety Report 5883254-4 (Version None)
Quarter: 2008Q3

REPORT INFORMATION
  Report Type: 
  Country: None (occurrence: None)
  Receive Date: 20080915
  Receipt Date: 20080901
  Transmission Date: 20090109
  Serious: Yes (Hospitalization)
  Sender: FDA-Public Use
  Company Number: IN-ELI_LILLY_AND_COMPANY-IN200806000121

PATIENT
  Sex: Male
  Weight: 81 kg

DRUGS (3)
  1. LISPRO 25LIS75NPL [Suspect]
     Indication: TYPE 2 DIABETES MELLITUS
     Dosage: 10 U, DAILY (1/D)
     Route: 058
     Dates: start: 20080403, end: 20080604
  2. ATORVASTATIN [Concomitant]
     Indication: DYSLIPIDAEMIA
     Dosage: 10 MG,
     Route: 048
     Dates: start: 20070220
  3. MULTI-VITAMIN [Concomitant]
     Dosage: 1 CAPSULE/DAY
     Route: 048
     Dates: start: 20060128

REACTIONS (3)
  - FALL [None]
  - HEAD INJURY [None]
  - HYPOGLYCAEMIA [None]
